FAERS Safety Report 11972279 (Version 1)
Quarter: 2016Q1

REPORT INFORMATION
  Report Type: Spontaneous
  Country: AU (occurrence: AU)
  Receive Date: 20160128
  Receipt Date: 20160128
  Transmission Date: 20160526
  Serious: Yes (Other)
  Sender: FDA-Public Use
  Company Number: AU-MYLANLABS-2016M1002633

PATIENT

DRUGS (2)
  1. ELEVA [Suspect]
     Active Substance: SERTRALINE HYDROCHLORIDE
     Indication: NARCOLEPSY
  2. ELEVA [Suspect]
     Active Substance: SERTRALINE HYDROCHLORIDE
     Indication: CATAPLEXY

REACTIONS (1)
  - Drug ineffective [Unknown]
